FAERS Safety Report 9095784 (Version 1)
Quarter: 2013Q1

REPORT INFORMATION
  Report Type: Spontaneous
  Country: US (occurrence: US)
  Receive Date: 20130219
  Receipt Date: 20130219
  Transmission Date: 20140127
  Serious: No
  Sender: FDA-Public Use
  Company Number: US-BAUSCH-BL-2012-001359

PATIENT
  Age: 40 Year
  Sex: Female

DRUGS (1)
  1. SULFACETAMIDE SODIUM [Suspect]
     Indication: CONJUNCTIVITIS
     Dosage: 1-2 DROPS IN LEFT EYE, EVERY THREE HOURS
     Route: 047
     Dates: start: 20121009, end: 20121012

REACTIONS (2)
  - Medication residue present [Recovered/Resolved]
  - Eyelid margin crusting [Recovered/Resolved]
